FAERS Safety Report 9028424 (Version 2)
Quarter: 2013Q1

REPORT INFORMATION
  Report Type: Spontaneous
  Country: US (occurrence: US)
  Receive Date: 20130124
  Receipt Date: 20130311
  Transmission Date: 20140127
  Serious: Yes (Hospitalization)
  Sender: FDA-Public Use
  Company Number: US-PFIZER INC-2013029454

PATIENT
  Age: 67 Year
  Sex: Male
  Weight: 138.3 kg

DRUGS (2)
  1. RAPAMUNE [Suspect]
     Indication: HEART TRANSPLANT
     Dosage: UNK
     Route: 048
  2. CELLCEPT [Concomitant]
     Dosage: UNK

REACTIONS (2)
  - Antinuclear antibody increased [Unknown]
  - Off label use [Unknown]
